FAERS Safety Report 11720410 (Version 1)
Quarter: 2015Q4

REPORT INFORMATION
  Report Type: Spontaneous
  Country: FR (occurrence: FR)
  Receive Date: 20151110
  Receipt Date: 20151110
  Transmission Date: 20160304
  Serious: Yes (Hospitalization)
  Sender: FDA-Public Use
  Company Number: FR-SA-2015SA175697

PATIENT
  Age: 80 Year
  Sex: Male

DRUGS (5)
  1. LASILIX SPECIAL [Suspect]
     Active Substance: FUROSEMIDE
     Indication: HEPATIC CIRRHOSIS
     Route: 065
     Dates: start: 20151008, end: 20151011
  2. ESIDREX [Concomitant]
     Active Substance: HYDROCHLOROTHIAZIDE
     Indication: ENCEPHALOPATHY
     Route: 065
  3. TOPALGIC [Concomitant]
     Active Substance: TRAMADOL
     Indication: HALLUCINATION
     Route: 065
  4. LASILIX SPECIAL [Suspect]
     Active Substance: FUROSEMIDE
     Indication: HEPATIC CIRRHOSIS
     Route: 065
     Dates: start: 20151006, end: 20151007
  5. AVLOCARDYL [Concomitant]
     Active Substance: PROPRANOLOL HYDROCHLORIDE
     Indication: BRADYCARDIA
     Route: 065

REACTIONS (1)
  - Acute kidney injury [Recovered/Resolved]

NARRATIVE: CASE EVENT DATE: 20151007
